FAERS Safety Report 6255870-1 (Version None)
Quarter: 2009Q3

REPORT INFORMATION
  Report Type: 
  Country: None (occurrence: None)
  Receive Date: 20090703
  Receipt Date: 20090622
  Transmission Date: 20100115
  Serious: Yes (Other)
  Sender: FDA-Public Use
  Company Number: AU-ROCHE-639899

PATIENT
  Age: 50 Year
  Sex: Female

DRUGS (5)
  1. MYCOPHENOLATE MOFETIL [Suspect]
     Route: 065
  2. RITUXIMAB [Suspect]
     Dosage: SINGLE DOSE
     Route: 065
  3. CYCLOSPORINE [Suspect]
     Route: 065
  4. PREDNISOLONE [Suspect]
     Route: 065
  5. IMMUNE GLOBULIN INTRAVENOUS (HUMAN) [Suspect]
     Dosage: DOSE: 0.1 GM/KG
     Route: 042

REACTIONS (3)
  - CYTOMEGALOVIRUS VIRAEMIA [None]
  - POLYOMAVIRUS-ASSOCIATED NEPHROPATHY [None]
  - TRANSPLANT REJECTION [None]
